FAERS Safety Report 7327614-3 (Version None)
Quarter: 2011Q1

REPORT INFORMATION
  Report Type: 
  Country: None (occurrence: None)
  Receive Date: 20110303
  Receipt Date: 20110223
  Transmission Date: 20110831
  Serious: No
  Sender: FDA-Public Use
  Company Number: US-BIOGENIDEC-2011BI007462

PATIENT
  Age: 42 Year
  Sex: Female

DRUGS (1)
  1. AVONEX [Suspect]
     Indication: MULTIPLE SCLEROSIS
     Route: 030
     Dates: start: 20090601, end: 20110201

REACTIONS (3)
  - INFLUENZA LIKE ILLNESS [None]
  - MIGRAINE [None]
  - INJECTION SITE HAEMORRHAGE [None]
